FAERS Safety Report 9692286 (Version 1)
Quarter: 2013Q4

REPORT INFORMATION
  Report Type: Spontaneous
  Country: US (occurrence: US)
  Receive Date: 20131118
  Receipt Date: 20131118
  Transmission Date: 20140711
  Serious: No
  Sender: FDA-Public Use
  Company Number: US-B.I. PHARMACEUTICALS,INC./RIDGEFIELD-2013-BI-36114BP

PATIENT
  Age: 67 Year
  Sex: Female

DRUGS (6)
  1. PRADAXA [Suspect]
     Indication: ATRIAL FIBRILLATION
     Dosage: 300 MG
     Route: 048
     Dates: start: 20130206
  2. FUROSEMIDE [Concomitant]
     Indication: HYPERTENSION
     Dosage: 20 MG
     Route: 048
  3. METOPROLOL [Concomitant]
     Indication: MYOCARDIAL INFARCTION
     Dosage: 200 MG
     Route: 048
  4. VERAPAMIL [Concomitant]
     Indication: HYPERTENSION
     Dosage: 480 MG
     Route: 048
  5. NITROTD PATCH [Concomitant]
     Indication: ANGINA PECTORIS
     Dosage: 9 MG
  6. PROPRANOLOL [Concomitant]
     Indication: ANGINA PECTORIS
     Dosage: 40 MG
     Route: 048

REACTIONS (1)
  - Hypertension [Not Recovered/Not Resolved]
